FAERS Safety Report 12272701 (Version 2)
Quarter: 2016Q2

REPORT INFORMATION
  Report Type: Spontaneous
  Country: US (occurrence: US)
  Receive Date: 20160415
  Receipt Date: 20160418
  Transmission Date: 20160815
  Serious: No
  Sender: FDA-Public Use
  Company Number: US-BAYER-2016-066315

PATIENT
  Age: 71 Year
  Sex: Female
  Weight: 67.12 kg

DRUGS (1)
  1. MIRALAX [Suspect]
     Active Substance: POLYETHYLENE GLYCOL 3350
     Indication: CONSTIPATION
     Dosage: 1/2
     Route: 048
     Dates: start: 2015

REACTIONS (3)
  - Product use issue [None]
  - Paraesthesia [None]
  - Hypoaesthesia [None]
